FAERS Safety Report 7150633-7 (Version None)
Quarter: 2010Q4

REPORT INFORMATION
  Report Type: 
  Country: None (occurrence: None)
  Receive Date: 20101210
  Receipt Date: 20090715
  Transmission Date: 20110411
  Serious: Yes (Hospitalization)
  Sender: FDA-Public Use
  Company Number: IT-AMGEN-UK346239

PATIENT

DRUGS (6)
  1. ROMIPLOSTIM [Suspect]
     Indication: IDIOPATHIC THROMBOCYTOPENIC PURPURA
     Dosage: 312 A?G, QWK
     Route: 058
     Dates: start: 20090305, end: 20090430
  2. OMEPRAZOLE [Concomitant]
     Dosage: 20 MG, BID
     Route: 065
  3. CALCITRIOL [Concomitant]
     Dosage: .25 MG, UNK
     Route: 065
  4. 3'THIACYTIDINE [Concomitant]
     Dosage: 100 MG, UNK
     Route: 065
  5. BISOPROLOL [Concomitant]
     Dosage: 2.5 MG, UNK
     Route: 065
  6. ENALAPRIL [Concomitant]
     Dosage: 10 MG, UNK
     Route: 065

REACTIONS (2)
  - ACUTE CORONARY SYNDROME [None]
  - PURPURA [None]
